FAERS Safety Report 11298478 (Version 1)
Quarter: 2015Q3

REPORT INFORMATION
  Report Type: Spontaneous
  Country: US (occurrence: US)
  Receive Date: 20150722
  Receipt Date: 20150722
  Transmission Date: 20151125
  Serious: No
  Sender: FDA-Public Use
  Company Number: US-ELI_LILLY_AND_COMPANY-US201111002217

PATIENT

DRUGS (2)
  1. HUMATROPE [Suspect]
     Active Substance: SOMATROPIN
     Indication: GROWTH HORMONE DEFICIENCY
     Dosage: 0.6 DF, UNK
     Dates: end: 201110
  2. HUMATROPE [Suspect]
     Active Substance: SOMATROPIN
     Dosage: 0.7 DF, UNK
     Dates: start: 201110

REACTIONS (1)
  - Underdose [Unknown]
